FAERS Safety Report 5959376-6 (Version None)
Quarter: 2008Q4

REPORT INFORMATION
  Report Type: 
  Country: None (occurrence: None)
  Receive Date: 20081119
  Receipt Date: 20081119
  Transmission Date: 20090506
  Serious: No
  Sender: FDA-Public Use
  Company Number: None

PATIENT
  Age: 32 Year
  Sex: Female
  Weight: 142 kg

DRUGS (2)
  1. HEPARIN [Suspect]
     Indication: PULMONARY EMBOLISM
     Dosage: 1850 UNITS/HR IV
     Route: 042
     Dates: start: 20080623, end: 20080624
  2. MOTRIN [Concomitant]

REACTIONS (3)
  - ACTIVATED PARTIAL THROMBOPLASTIN TIME PROLONGED [None]
  - HAEMOGLOBIN DECREASED [None]
  - VAGINAL HAEMORRHAGE [None]
